FAERS Safety Report 14557641 (Version 1)
Quarter: 2018Q1

REPORT INFORMATION
  Report Type: Spontaneous
  Country: FR (occurrence: FR)
  Receive Date: 20180221
  Receipt Date: 20180221
  Transmission Date: 20180509
  Serious: Yes (Other)
  Sender: FDA-Public Use
  Company Number: FR-IPSEN BIOPHARMACEUTICALS, INC.-2018-02704

PATIENT
  Age: 84 Year
  Sex: Male

DRUGS (9)
  1. SOMATULINE [Suspect]
     Active Substance: LANREOTIDE ACETATE
     Indication: THYMOMA MALIGNANT
     Dosage: NOT REPORTED
     Route: 058
     Dates: end: 2017
  2. SOMATULINE [Suspect]
     Active Substance: LANREOTIDE ACETATE
     Indication: OFF LABEL USE
  3. EMEND [Suspect]
     Active Substance: APREPITANT
     Indication: THYMOMA MALIGNANT
     Route: 048
     Dates: start: 201709
  4. AERIUS [Concomitant]
     Active Substance: DESLORATADINE
  5. G-CSF HUMAN RECOMBINANT [Concomitant]
  6. CYANOCOBALAMIN. [Concomitant]
     Active Substance: CYANOCOBALAMIN
  7. ALIMTA [Suspect]
     Active Substance: PEMETREXED DISODIUM
     Indication: THYMOMA MALIGNANT
     Route: 041
     Dates: start: 201709
  8. FOLINIC ACID [Concomitant]
     Active Substance: LEUCOVORIN
  9. PREDNISOLONE. [Suspect]
     Active Substance: PREDNISOLONE
     Indication: THYMOMA MALIGNANT
     Route: 048
     Dates: start: 201709

REACTIONS (3)
  - Keratitis [Not Recovered/Not Resolved]
  - Retinopathy [Not Recovered/Not Resolved]
  - Off label use [Unknown]

NARRATIVE: CASE EVENT DATE: 201801
